FAERS Safety Report 14667354 (Version 1)
Quarter: 2018Q1

REPORT INFORMATION
  Report Type: Spontaneous
  Country: US (occurrence: US)
  Receive Date: 20180322
  Receipt Date: 20180322
  Transmission Date: 20180509
  Serious: Yes (Other)
  Sender: FDA-Public Use
  Company Number: US-009507513-1803USA007662

PATIENT
  Age: 87 Year
  Sex: Female

DRUGS (5)
  1. LORAZEPAM. [Suspect]
     Active Substance: LORAZEPAM
  2. CITALOPRAM [Concomitant]
     Active Substance: CITALOPRAM HYDROBROMIDE
  3. REMERON [Suspect]
     Active Substance: MIRTAZAPINE
  4. TRAZODONE HYDROCHLORIDE. [Suspect]
     Active Substance: TRAZODONE HYDROCHLORIDE
  5. SILENOR [Suspect]
     Active Substance: DOXEPIN HYDROCHLORIDE

REACTIONS (9)
  - Drug ineffective [Unknown]
  - Gait disturbance [Unknown]
  - Drug dependence [Unknown]
  - Drug effect decreased [Unknown]
  - Age-related macular degeneration [Unknown]
  - Insomnia [Unknown]
  - Sleep disorder [Unknown]
  - Feeling drunk [Unknown]
  - Restless legs syndrome [Unknown]
